FAERS Safety Report 11133043 (Version 1)
Quarter: 2015Q2

REPORT INFORMATION
  Report Type: Spontaneous
  Country: BR (occurrence: BR)
  Receive Date: 20150522
  Receipt Date: 20150522
  Transmission Date: 20150821
  Serious: Yes (Other)
  Sender: FDA-Public Use
  Company Number: BR-PFIZER INC-2015168449

PATIENT
  Age: 39 Year
  Sex: Female
  Weight: 59 kg

DRUGS (1)
  1. DOSTINEX [Suspect]
     Active Substance: CABERGOLINE
     Indication: BLOOD PROLACTIN INCREASED
     Dosage: UNK
     Route: 048
     Dates: start: 2013, end: 2014

REACTIONS (3)
  - Pituitary tumour [Unknown]
  - Blood prolactin increased [Not Recovered/Not Resolved]
  - Disease recurrence [Not Recovered/Not Resolved]
